FAERS Safety Report 7039031-4 (Version None)
Quarter: 2010Q4

REPORT INFORMATION
  Report Type: 
  Country: None (occurrence: None)
  Receive Date: 20101012
  Receipt Date: 20101004
  Transmission Date: 20110411
  Serious: Yes (Hospitalization)
  Sender: FDA-Public Use
  Company Number: US-ELI_LILLY_AND_COMPANY-US201009001033

PATIENT
  Sex: Female

DRUGS (13)
  1. FORTEO [Suspect]
     Indication: OSTEOPOROSIS
     Dosage: 20 UG, DAILY (1/D)
     Route: 065
     Dates: start: 20100501
  2. ANALGESICS [Concomitant]
     Indication: PAIN
  3. CALCIUM [Concomitant]
  4. VITAMIN D [Concomitant]
  5. STOOL SOFTENER [Concomitant]
  6. ANTIBIOTICS [Concomitant]
  7. ATIVAN [Concomitant]
  8. PERCOCET [Concomitant]
  9. FERSOLATE [Concomitant]
  10. POTASSIUM [Concomitant]
  11. SENNA [Concomitant]
  12. SIMVASTATIN [Concomitant]
  13. DELTALIN [Concomitant]

REACTIONS (8)
  - JOINT INJURY [None]
  - LIMB INJURY [None]
  - LOWER LIMB FRACTURE [None]
  - PELVIC FRACTURE [None]
  - ROAD TRAFFIC ACCIDENT [None]
  - SKELETAL INJURY [None]
  - SPINAL FRACTURE [None]
  - WEIGHT BEARING DIFFICULTY [None]
